FAERS Safety Report 6322191-8 (Version None)
Quarter: 2009Q3

REPORT INFORMATION
  Report Type: 
  Country: None (occurrence: None)
  Receive Date: 20090820
  Receipt Date: 20090805
  Transmission Date: 20100115
  Serious: Yes (Life-Threatening, Hospitalization)
  Sender: FDA-Public Use
  Company Number: AE09-0038

PATIENT
  Age: 46 Year
  Sex: Female

DRUGS (8)
  1. BUPROPION HYDROCHLORIDE [Suspect]
     Indication: BIPOLAR II DISORDER
     Dosage: 150 MG/DAY, ORAL
     Route: 048
     Dates: start: 20080501, end: 20090701
  2. GABAPENTIN [Concomitant]
  3. CLONAZEPAM [Concomitant]
  4. NAPROXEN [Concomitant]
  5. LAMOTRIGINE [Concomitant]
  6. TOPIRAMATE [Concomitant]
  7. MULTI-VITAMINS [Concomitant]
  8. OMEGA-3 FATTY ACIDS [Concomitant]

REACTIONS (3)
  - DEPRESSION [None]
  - OVERDOSE [None]
  - SUICIDE ATTEMPT [None]
